FAERS Safety Report 5057433-2 (Version None)
Quarter: 2006Q3

REPORT INFORMATION
  Report Type: 
  Country: None (occurrence: None)
  Receive Date: 20060721
  Receipt Date: 20050930
  Transmission Date: 20061208
  Serious: No
  Sender: FDA-Public Use
  Company Number: US-GLAXOSMITHKLINE-A0576590A

PATIENT
  Age: 32 Year
  Sex: Female

DRUGS (5)
  1. AVANDIA [Suspect]
     Dosage: 8MG TWICE PER DAY
     Route: 048
     Dates: start: 20050929, end: 20050930
  2. AMARYL [Concomitant]
  3. DIOVAN [Concomitant]
  4. PRAVACHOL [Concomitant]
  5. TRICOR [Concomitant]

REACTIONS (1)
  - PRESCRIBED OVERDOSE [None]
